FAERS Safety Report 6934107-1 (Version None)
Quarter: 2010Q3

REPORT INFORMATION
  Report Type: 
  Country: None (occurrence: None)
  Receive Date: 20100820
  Receipt Date: 20100719
  Transmission Date: 20110219
  Serious: Yes (Other)
  Sender: FDA-Public Use
  Company Number: US-MERCK-1007USA02583

PATIENT
  Age: 36 Month
  Sex: Female

DRUGS (4)
  1. HYDROCORTONE [Suspect]
     Indication: ACUTE MONOCYTIC LEUKAEMIA
     Route: 048
  2. CLADRIBINE [Suspect]
     Indication: ACUTE MONOCYTIC LEUKAEMIA
     Route: 065
  3. METHOTREXATE [Suspect]
     Indication: ACUTE MONOCYTIC LEUKAEMIA
     Route: 065
  4. CYTARABINE [Suspect]
     Indication: ACUTE MONOCYTIC LEUKAEMIA
     Route: 065

REACTIONS (4)
  - CLOSTRIDIUM DIFFICILE COLITIS [None]
  - NEUTROPENIC COLITIS [None]
  - PANCYTOPENIA [None]
  - RESPIRATORY DISTRESS [None]
